FAERS Safety Report 5170438-6 (Version None)
Quarter: 2006Q4

REPORT INFORMATION
  Report Type: 
  Country: None (occurrence: None)
  Receive Date: 20061212
  Receipt Date: 20061201
  Transmission Date: 20070319
  Serious: Yes (Disabling, Other)
  Sender: FDA-Public Use
  Company Number: GB-GILEAD-2006-0010775

PATIENT
  Age: 34 Year
  Sex: Male
  Weight: 67.5 kg

DRUGS (6)
  1. TENOFOVIR DISOPROXIL FUMARATE [Suspect]
     Route: 048
     Dates: start: 20040920, end: 20061101
  2. ABACAVIR [Concomitant]
     Route: 048
     Dates: start: 20051201
  3. DAPSONE [Concomitant]
     Route: 048
     Dates: start: 20031121, end: 20060915
  4. DDI [Concomitant]
     Dates: start: 20040920, end: 20051201
  5. DDI [Concomitant]
     Dates: start: 20040920, end: 20051201
  6. KALETRA [Concomitant]
     Route: 048
     Dates: start: 20040920

REACTIONS (4)
  - ARTHRALGIA [None]
  - FANCONI SYNDROME [None]
  - METHAEMOGLOBINAEMIA [None]
  - MYOPATHY [None]
